FAERS Safety Report 8800625 (Version 1)
Quarter: 2012Q4

REPORT INFORMATION
  Report Type: 
  Country: US (occurrence: US)
  Receive Date: 20120921
  Receipt Date: 20120921
  Transmission Date: 20130627
  Serious: Yes (Hospitalization)
  Sender: FDA-Public Use
  Company Number: US-ELI_LILLY_AND_COMPANY-US201209004330

PATIENT
  Age: 50 Year
  Sex: Male

DRUGS (2)
  1. EFFIENT [Suspect]
     Indication: STENT PLACEMENT
     Dosage: UNK
  2. EFFIENT [Suspect]
     Dosage: UNK
     Dates: start: 20120913

REACTIONS (2)
  - Thrombosis in device [Recovering/Resolving]
  - Myocardial infarction [Recovering/Resolving]
